FAERS Safety Report 13207014 (Version 1)
Quarter: 2017Q1

REPORT INFORMATION
  Report Type: Spontaneous
  Country: US (occurrence: US)
  Receive Date: 20170209
  Receipt Date: 20170209
  Transmission Date: 20170428
  Serious: No
  Sender: FDA-Public Use
  Company Number: US-SA-2016SA204218

PATIENT
  Age: 79 Year
  Sex: Female

DRUGS (13)
  1. PRALUENT [Suspect]
     Active Substance: ALIROCUMAB
     Route: 058
     Dates: start: 20161013
  2. ALIROCUMAB PREFILLED PEN [Concomitant]
     Active Substance: ALIROCUMAB
  3. CLONIDINE. [Concomitant]
     Active Substance: CLONIDINE
  4. VALSARTAN. [Concomitant]
     Active Substance: VALSARTAN
  5. ALPRAZOLAM. [Concomitant]
     Active Substance: ALPRAZOLAM
  6. HYDRALAZINE [Concomitant]
     Active Substance: HYDRALAZINE HYDROCHLORIDE
  7. SPIRONOLACT [Concomitant]
  8. ATENOLOL. [Concomitant]
     Active Substance: ATENOLOL
  9. LEVOTHYROXINE. [Concomitant]
     Active Substance: LEVOTHYROXINE
  10. PROCTOZONE-H [Concomitant]
     Dosage: CREAM -2.5 %
  11. CRESTOR [Concomitant]
     Active Substance: ROSUVASTATIN CALCIUM
  12. SYMBICORT [Concomitant]
     Active Substance: BUDESONIDE\FORMOTEROL FUMARATE DIHYDRATE
  13. TRAVATAN Z [Concomitant]
     Active Substance: TRAVOPROST

REACTIONS (7)
  - Pruritus [Recovered/Resolved]
  - Hypoaesthesia [Not Recovered/Not Resolved]
  - Hypoaesthesia oral [Not Recovered/Not Resolved]
  - Rash [Recovered/Resolved]
  - Joint swelling [Not Recovered/Not Resolved]
  - Myalgia [Not Recovered/Not Resolved]
  - Arthralgia [Recovered/Resolved]
